FAERS Safety Report 7471105-6 (Version None)
Quarter: 2011Q2

REPORT INFORMATION
  Report Type: 
  Country: None (occurrence: None)
  Receive Date: 20110510
  Receipt Date: 20110427
  Transmission Date: 20111010
  Serious: Yes (Hospitalization, Other)
  Sender: FDA-Public Use
  Company Number: JP-ASTRAZENECA-2011SE12765

PATIENT
  Age: 30480 Day
  Sex: Female

DRUGS (1)
  1. MEROPENEM [Suspect]
     Indication: PNEUMONIA ASPIRATION
     Route: 042
     Dates: start: 20110212, end: 20110214

REACTIONS (3)
  - LIVER DISORDER [None]
  - RENAL DISORDER [None]
  - PLATELET COUNT DECREASED [None]
